FAERS Safety Report 9841967 (Version 2)
Quarter: 2014Q1

REPORT INFORMATION
  Report Type: Spontaneous
  Country: JP (occurrence: JP)
  Receive Date: 20140124
  Receipt Date: 20140124
  Transmission Date: 20141002
  Serious: Yes (Death)
  Sender: FDA-Public Use
  Company Number: JP-B.I. PHARMACEUTICALS,INC./RIDGEFIELD-2014-BI-00733NB

PATIENT
  Age: 72 Year
  Sex: Male
  Weight: 58 kg

DRUGS (4)
  1. PRAZAXA [Suspect]
     Indication: ATRIAL FIBRILLATION
     Dosage: 220 MG
     Route: 048
     Dates: start: 201312
  2. MAINTATE [Suspect]
     Route: 065
  3. SUNRYTHM [Suspect]
     Route: 065
  4. REZALTAS [Suspect]
     Route: 065

REACTIONS (3)
  - Neoplasm malignant [Fatal]
  - Haematuria [Unknown]
  - Calculus urinary [Unknown]
